FAERS Safety Report 17664885 (Version 1)
Quarter: 2020Q2

REPORT INFORMATION
  Report Type: Spontaneous
  Country: US (occurrence: US)
  Receive Date: 20200413
  Receipt Date: 20200413
  Transmission Date: 20200713
  Serious: Yes (Hospitalization)
  Sender: FDA-Public Use
  Company Number: None

PATIENT
  Age: 72 Year
  Sex: Male

DRUGS (3)
  1. PAROXETINE. [Suspect]
     Active Substance: PAROXETINE
     Indication: DEPRESSION
     Route: 048
     Dates: start: 20200301, end: 20200403
  2. PAROXETINE. [Suspect]
     Active Substance: PAROXETINE
     Indication: INSOMNIA
     Route: 048
     Dates: start: 20200301, end: 20200403
  3. PAROXETINE. [Suspect]
     Active Substance: PAROXETINE
     Indication: ANXIETY
     Route: 048
     Dates: start: 20200301, end: 20200403

REACTIONS (7)
  - Vomiting [None]
  - Asthenia [None]
  - Hypovolaemia [None]
  - Headache [None]
  - Hyponatraemia [None]
  - Nausea [None]
  - Inappropriate antidiuretic hormone secretion [None]

NARRATIVE: CASE EVENT DATE: 20200403
